FAERS Safety Report 6079098-3 (Version None)
Quarter: 2009Q1

REPORT INFORMATION
  Report Type: 
  Country: None (occurrence: None)
  Receive Date: 20090216
  Receipt Date: 20090206
  Transmission Date: 20090719
  Serious: Yes (Hospitalization)
  Sender: FDA-Public Use
  Company Number: A0718383A

PATIENT
  Age: 53 Year
  Sex: Male
  Weight: 106.8 kg

DRUGS (8)
  1. AVANDIA [Suspect]
     Indication: DIABETES MELLITUS
     Dosage: 4MG TWICE PER DAY
     Dates: start: 20000701, end: 20070101
  2. AVANDAMET [Suspect]
     Indication: DIABETES MELLITUS
     Dates: start: 20030101, end: 20070101
  3. AVANDARYL [Suspect]
     Indication: DIABETES MELLITUS
     Dates: start: 20030101, end: 20070101
  4. VYTORIN [Concomitant]
  5. METOPROLOL TARTRATE [Concomitant]
  6. LEXAPRO [Concomitant]
  7. LISINOPRIL [Concomitant]
  8. AMARYL [Concomitant]

REACTIONS (21)
  - ANGINA PECTORIS [None]
  - ARRHYTHMIA [None]
  - ARTERIAL OCCLUSIVE DISEASE [None]
  - ARTERIOSCLEROSIS [None]
  - CARDIAC FAILURE CONGESTIVE [None]
  - CARDIOVASCULAR DISORDER [None]
  - CONGESTIVE CARDIOMYOPATHY [None]
  - CORONARY ARTERY DISEASE [None]
  - DIAPHRAGMATIC PARALYSIS [None]
  - DYSPNOEA [None]
  - GAIT DISTURBANCE [None]
  - HYPERTENSION [None]
  - INJURY [None]
  - MYOCARDIAL INFARCTION [None]
  - MYOCARDIAL ISCHAEMIA [None]
  - PERIPHERAL VASCULAR DISORDER [None]
  - PLEURAL EFFUSION [None]
  - ROAD TRAFFIC ACCIDENT [None]
  - SINUS BRADYCARDIA [None]
  - SYNCOPE [None]
  - VENTRICULAR FIBRILLATION [None]
